FAERS Safety Report 9849331 (Version 3)
Quarter: 2014Q1

REPORT INFORMATION
  Report Type: Report from Study
  Country: AU (occurrence: AU)
  Receive Date: 20140128
  Receipt Date: 20140204
  Transmission Date: 20141002
  Serious: Yes (Other)
  Sender: FDA-Public Use
  Company Number: PHHY2014AU002775

PATIENT
  Sex: Female

DRUGS (1)
  1. FEMARA [Suspect]
     Indication: BREAST CANCER METASTATIC
     Dosage: UNK UKN, UNK
     Route: 048

REACTIONS (7)
  - Convulsion [Unknown]
  - Breast cancer metastatic [Unknown]
  - Malignant neoplasm progression [Unknown]
  - Metastases to meninges [Unknown]
  - Breast cancer recurrent [Unknown]
  - Bone disorder [Unknown]
  - Treatment failure [Unknown]
